FAERS Safety Report 8420712-2 (Version None)
Quarter: 2012Q2

REPORT INFORMATION
  Report Type: 
  Country: None (occurrence: None)
  Receive Date: 20120608
  Receipt Date: 20120605
  Transmission Date: 20120825
  Serious: Yes (Other)
  Sender: FDA-Public Use
  Company Number: US-AMGEN-USASP2012035193

PATIENT
  Age: 17 Year
  Sex: Female

DRUGS (1)
  1. ENBREL [Suspect]
     Indication: JUVENILE ARTHRITIS
     Dosage: 42 MG, QWK

REACTIONS (4)
  - HALLUCINATION, VISUAL [None]
  - FACIAL OPERATION [None]
  - HYPERACUSIS [None]
  - INFECTION [None]
